FAERS Safety Report 20408857 (Version 1)
Quarter: 2022Q1

REPORT INFORMATION
  Report Type: Report from Study
  Country: DE (occurrence: DE)
  Receive Date: 20220201
  Receipt Date: 20220201
  Transmission Date: 20220423
  Serious: Yes (Other)
  Sender: FDA-Public Use
  Company Number: DE-PFIZER INC-202200051279

PATIENT
  Age: 8 Day

DRUGS (6)
  1. VORICONAZOLE [Suspect]
     Active Substance: VORICONAZOLE
     Indication: Trichosporon infection
     Dosage: 9 MILLIGRAM/KILOGRAM, ONCE A DAY (Q12, DOSE MODIFICATION)
     Route: 065
  2. VORICONAZOLE [Suspect]
     Active Substance: VORICONAZOLE
     Dosage: 6 MILLIGRAM/KILOGRAM, ONCE A DAY (Q12, LOADING DOSE, D1)
     Route: 065
  3. VORICONAZOLE [Suspect]
     Active Substance: VORICONAZOLE
     Dosage: 4 MILLIGRAM/KILOGRAM, ONCE A DAY  (Q12, FROM DAY 2)
     Route: 065
  4. AMPHOTERICIN B [Concomitant]
     Active Substance: AMPHOTERICIN B
     Indication: Trichosporon infection
     Dosage: UNK
     Route: 065
  5. POSACONAZOLE [Concomitant]
     Active Substance: POSACONAZOLE
     Indication: Trichosporon infection
     Dosage: 10 MILLIGRAM/KILOGRAM, ONCE A DAY (5 MG/KG, 2X/DAY)
     Route: 065
  6. POSACONAZOLE [Concomitant]
     Active Substance: POSACONAZOLE
     Dosage: 14 MILLIGRAM/KILOGRAM, ONCE A DAY (7 MG/KG, 2X/DAY)
     Route: 065

REACTIONS (1)
  - Hepatotoxicity [Recovered/Resolved]
